FAERS Safety Report 8174714-4 (Version None)
Quarter: 2012Q1

REPORT INFORMATION
  Report Type: 
  Country: None (occurrence: None)
  Receive Date: 20120229
  Receipt Date: 20120228
  Transmission Date: 20120608
  Serious: Yes (Hospitalization)
  Sender: FDA-Public Use
  Company Number: US-GLAXOSMITHKLINE-B0705447A

PATIENT
  Sex: Female
  Weight: 77.3 kg

DRUGS (9)
  1. INSULIN [Concomitant]
  2. PLAVIX [Concomitant]
  3. AVANDIA [Suspect]
     Indication: DIABETES MELLITUS
     Dosage: 4MG TWICE PER DAY
     Route: 048
     Dates: start: 20010301, end: 20080101
  4. LANTUS [Concomitant]
  5. GLUCOPHAGE [Concomitant]
  6. ACCUPRIL [Concomitant]
  7. ASPIRIN [Concomitant]
  8. LOPRESSOR [Concomitant]
  9. LIPITOR [Concomitant]

REACTIONS (3)
  - PULMONARY OEDEMA [None]
  - CARDIAC FAILURE CONGESTIVE [None]
  - CARDIOVASCULAR DISORDER [None]
